FAERS Safety Report 8375270-8 (Version None)
Quarter: 2012Q2

REPORT INFORMATION
  Report Type: 
  Country: None (occurrence: None)
  Receive Date: 20120522
  Receipt Date: 20120514
  Transmission Date: 20120825
  Serious: Yes (Hospitalization)
  Sender: FDA-Public Use
  Company Number: US-BIOGENIDEC-2007BI009578

PATIENT
  Age: 56 Year
  Sex: Female

DRUGS (6)
  1. AVONEX [Suspect]
     Route: 030
     Dates: start: 20120401
  2. JANUVIA [Concomitant]
     Indication: TYPE 2 DIABETES MELLITUS
     Dates: start: 20010101
  3. NEURONTIN [Concomitant]
     Indication: HYPOAESTHESIA
     Dates: start: 20000101
  4. ATENOLOL [Concomitant]
     Indication: HYPERTENSION
  5. HYDROCHLOROTHIAZIDE [Concomitant]
     Indication: HYPERTENSION
  6. AVONEX [Suspect]
     Indication: MULTIPLE SCLEROSIS
     Route: 030
     Dates: start: 20030128, end: 20091001

REACTIONS (6)
  - SPINAL COLUMN STENOSIS [None]
  - DRY MOUTH [None]
  - ARTHRALGIA [None]
  - MUSCLE SPASMS [None]
  - CYSTITIS INTERSTITIAL [None]
  - BLADDER PAIN [None]
